FAERS Safety Report 7602642-9 (Version None)
Quarter: 2011Q3

REPORT INFORMATION
  Report Type: 
  Country: None (occurrence: None)
  Receive Date: 20110712
  Receipt Date: 20110630
  Transmission Date: 20111222
  Serious: Yes (Death, Other)
  Sender: FDA-Public Use
  Company Number: GB-ELI_LILLY_AND_COMPANY-GB201106007394

PATIENT
  Age: 41 Year

DRUGS (7)
  1. 9-TETRAHYDROCANNABINOL [Concomitant]
  2. CITALOPRAM [Concomitant]
  3. DIAZEPAM [Concomitant]
  4. METHADONE HCL [Concomitant]
  5. NORDIAZEPAM [Concomitant]
  6. METHAMPHETAMINE HYDROCHLORIDE [Concomitant]
  7. OLANZAPINE [Suspect]
     Dosage: UNK, UNKNOWN

REACTIONS (3)
  - TOXICITY TO VARIOUS AGENTS [None]
  - RESPIRATORY DEPRESSION [None]
  - INTENTIONAL OVERDOSE [None]
